FAERS Safety Report 18582021 (Version 1)
Quarter: 2020Q4

REPORT INFORMATION
  Report Type: Spontaneous
  Country: HU (occurrence: HU)
  Receive Date: 20201204
  Receipt Date: 20201204
  Transmission Date: 20210114
  Serious: Yes (Other)
  Sender: FDA-Public Use
  Company Number: HU-PFIZER INC-2020474440

PATIENT
  Sex: Female

DRUGS (17)
  1. RIBOCICLIB. [Suspect]
     Active Substance: RIBOCICLIB
     Dosage: UNK
     Dates: start: 20190611
  2. CALCIUM DOBESILATE [Suspect]
     Active Substance: CALCIUM DOBESILATE
     Dosage: UNK
  3. CHOLECALCIFEROL [Concomitant]
     Active Substance: CHOLECALCIFEROL
     Dosage: UNK
  4. ERYTHROPOIETIN [Concomitant]
     Active Substance: ERYTHROPOIETIN
     Dosage: UNK
     Dates: start: 2013
  5. ALPRAZOLAM. [Suspect]
     Active Substance: ALPRAZOLAM
     Dosage: UNK
  6. ATORVASTATIN CALCIUM. [Suspect]
     Active Substance: ATORVASTATIN CALCIUM
     Dosage: UNK
  7. CALCIUM CARBONATE. [Concomitant]
     Active Substance: CALCIUM CARBONATE
     Dosage: UNK
     Route: 065
  8. DOXAZOSIN MESILATE [Suspect]
     Active Substance: DOXAZOSIN MESYLATE
     Dosage: UNK
  9. LETROZOLE. [Suspect]
     Active Substance: LETROZOLE
     Indication: INVASIVE DUCTAL BREAST CARCINOMA
     Dosage: UNK
     Dates: start: 2017, end: 201905
  10. FULVESTRANT. [Suspect]
     Active Substance: FULVESTRANT
     Dosage: UNK
     Dates: start: 20190611
  11. INSULIN [Concomitant]
     Active Substance: INSULIN NOS
     Dosage: UNK
  12. ACETYLSALICYLIC ACID [Concomitant]
     Active Substance: ASPIRIN
     Dosage: UNK
     Route: 065
  13. ENALAPRIL [Suspect]
     Active Substance: ENALAPRIL
     Dosage: UNK
  14. FUROSEMIDE. [Concomitant]
     Active Substance: FUROSEMIDE
     Dosage: UNK
  15. LERCANIDIPINE [Concomitant]
     Active Substance: LERCANIDIPINE
     Dosage: UNK
     Route: 065
  16. FERROUS GLUCONATE [Concomitant]
     Active Substance: FERROUS GLUCONATE
     Dosage: UNK
  17. CLOPIDOGREL [Concomitant]
     Active Substance: CLOPIDOGREL BISULFATE
     Dosage: UNK

REACTIONS (6)
  - Renal atrophy [Unknown]
  - Endocarditis [Unknown]
  - Recurrent cancer [Unknown]
  - Metastases to chest wall [Recovering/Resolving]
  - Metastases to liver [Unknown]
  - Diabetic retinopathy [Unknown]

NARRATIVE: CASE EVENT DATE: 2018
